FAERS Safety Report 18726800 (Version 1)
Quarter: 2021Q1

REPORT INFORMATION
  Report Type: Spontaneous
  Country: AU (occurrence: AU)
  Receive Date: 20210112
  Receipt Date: 20210112
  Transmission Date: 20210419
  Serious: Yes (Other)
  Sender: FDA-Public Use
  Company Number: AU-ROCHE-2746648

PATIENT
  Sex: Male
  Weight: 82 kg

DRUGS (1)
  1. VALIUM [Suspect]
     Active Substance: DIAZEPAM
     Indication: DEPRESSION
     Route: 065
     Dates: start: 20050101

REACTIONS (6)
  - Encephalopathy [Unknown]
  - Overdose [Unknown]
  - Suicidal ideation [Unknown]
  - Blood potassium increased [Unknown]
  - Anaemia [Unknown]
  - Blood creatine phosphokinase abnormal [Unknown]

NARRATIVE: CASE EVENT DATE: 2005
